FAERS Safety Report 21504999 (Version 1)
Quarter: 2022Q4

REPORT INFORMATION
  Report Type: Spontaneous
  Country: US (occurrence: US)
  Receive Date: 20221025
  Receipt Date: 20221025
  Transmission Date: 20230113
  Serious: No
  Sender: FDA-Public Use
  Company Number: US-PADAGIS-2022PAD00761

PATIENT

DRUGS (1)
  1. TRIAMCINOLONE ACETONIDE [Suspect]
     Active Substance: TRIAMCINOLONE ACETONIDE
     Indication: Miliaria
     Dosage: 3 TIMES PER DAY
     Route: 065
     Dates: start: 202205, end: 20220924

REACTIONS (4)
  - Application site discolouration [Not Recovered/Not Resolved]
  - Application site inflammation [Not Recovered/Not Resolved]
  - Hypersensitivity [Unknown]
  - Application site pain [Not Recovered/Not Resolved]

NARRATIVE: CASE EVENT DATE: 20220501
